FAERS Safety Report 19077537 (Version 1)
Quarter: 2021Q1

REPORT INFORMATION
  Report Type: Spontaneous
  Country: CA (occurrence: CA)
  Receive Date: 20210331
  Receipt Date: 20210331
  Transmission Date: 20210420
  Serious: Yes (Other)
  Sender: FDA-Public Use
  Company Number: CA-ROCHE-2793339

PATIENT
  Age: 62 Year
  Sex: Female

DRUGS (5)
  1. TAXOL [Concomitant]
     Active Substance: PACLITAXEL
     Indication: HER2 POSITIVE BREAST CANCER
  2. LAPELGA [Concomitant]
     Active Substance: PEGFILGRASTIM
  3. TRASTUZUMAB. [Suspect]
     Active Substance: TRASTUZUMAB
     Indication: HER2 POSITIVE BREAST CANCER
     Route: 065
  4. DEXAMETHASONE. [Concomitant]
     Active Substance: DEXAMETHASONE
     Route: 065
  5. PERJETA [Suspect]
     Active Substance: PERTUZUMAB
     Indication: HER2 POSITIVE BREAST CANCER
     Dosage: 1.0 DAYS; 14ML VIAL ? CONCENTRATE SOL.
     Route: 042

REACTIONS (11)
  - Blood uric acid decreased [Not Recovered/Not Resolved]
  - Pneumonia [Not Recovered/Not Resolved]
  - White blood cell count decreased [Not Recovered/Not Resolved]
  - Haemoglobin decreased [Not Recovered/Not Resolved]
  - Diarrhoea [Not Recovered/Not Resolved]
  - Red blood cell count decreased [Not Recovered/Not Resolved]
  - Blood urea decreased [Not Recovered/Not Resolved]
  - Haematocrit decreased [Not Recovered/Not Resolved]
  - Red cell distribution width increased [Not Recovered/Not Resolved]
  - Lymphocyte count decreased [Not Recovered/Not Resolved]
  - Nasopharyngitis [Not Recovered/Not Resolved]
